FAERS Safety Report 5128207-9 (Version None)
Quarter: 2006Q4

REPORT INFORMATION
  Report Type: 
  Country: None (occurrence: None)
  Receive Date: 20061011
  Receipt Date: 20061002
  Transmission Date: 20070319
  Serious: Yes (Hospitalization)
  Sender: FDA-Public Use
  Company Number: 2006121056

PATIENT
  Age: 79 Year
  Sex: Male

DRUGS (9)
  1. PREDNISOLONE [Suspect]
     Indication: BRONCHITIS CHRONIC
     Dosage: ORAL
     Route: 048
  2. CALCIUM CARBONATE                 (CALCIUM CARBONATE) [Suspect]
     Dosage: 3 MG (1 MG, 3 IN 1 D), ORAL
     Route: 048
  3. SYMBICORT [Concomitant]
  4. SPIRIVA [Concomitant]
  5. WARFARIN SODIUM [Concomitant]
  6. ETALPHA                         (ALFACALCIDOL0 [Concomitant]
  7. PROSCAR [Concomitant]
  8. COZZAR               (LOSARTAN POTASSIUM) [Concomitant]
  9. HYDREA [Concomitant]

REACTIONS (3)
  - HYPOCALCAEMIA [None]
  - THERAPEUTIC RESPONSE DECREASED [None]
  - TREMOR [None]
